FAERS Safety Report 6202603-0 (Version None)
Quarter: 2009Q2

REPORT INFORMATION
  Report Type: 
  Country: None (occurrence: None)
  Receive Date: 20090521
  Receipt Date: 20090521
  Transmission Date: 20091009
  Serious: Yes (Death)
  Sender: FDA-Public Use
  Company Number: None

PATIENT
  Age: 38 Year
  Sex: Female

DRUGS (1)
  1. SCOPE MOUTHWASH, FLAVOR UNKNOWN ETHANOL 8.4-15%, CETYLPYRIDINIUM CHLOR [Suspect]
     Dosage: 2 BOTTLES (UNKNOWN VOLUME) A DAY FOR 5 YEARS
     Route: 048

REACTIONS (1)
  - HEPATIC CIRRHOSIS [None]
